FAERS Safety Report 11037415 (Version 1)
Quarter: 2015Q2

REPORT INFORMATION
  Report Type: Spontaneous
  Country: None (occurrence: None)
  Receive Date: 20150415
  Receipt Date: 20150415
  Transmission Date: 20150821
  Serious: No
  Sender: FDA-Public Use
  Company Number: None

PATIENT
  Age: 32 Year
  Sex: Female
  Weight: 65 kg

DRUGS (1)
  1. SIMPONI [Suspect]
     Active Substance: GOLIMUMAB
     Indication: CROHN^S DISEASE
     Dosage: 100 MG 3 WEEKS GIVEN INTO/UNDER THE SKIN

REACTIONS (4)
  - Photosensitivity reaction [None]
  - Pain [None]
  - Rash [None]
  - Inflammation [None]

NARRATIVE: CASE EVENT DATE: 20150412
